FAERS Safety Report 22122223 (Version 2)
Quarter: 2023Q2

REPORT INFORMATION
  Report Type: Spontaneous
  Country: US (occurrence: US)
  Receive Date: 20230321
  Receipt Date: 20230410
  Transmission Date: 20230722
  Serious: No
  Sender: FDA-Public Use
  Company Number: US-BRISTOL-MYERS SQUIBB COMPANY-2023-040973

PATIENT
  Age: 66 Year
  Sex: Female

DRUGS (1)
  1. SOTYKTU [Suspect]
     Active Substance: DEUCRAVACITINIB
     Indication: Psoriasis
     Dosage: 1 TAB DAILY ORAL
     Route: 048
     Dates: start: 20230117, end: 20230301

REACTIONS (8)
  - Skin ulcer [Unknown]
  - Psoriasis [Recovered/Resolved]
  - Rash erythematous [Unknown]
  - Arthralgia [Unknown]
  - Aphthous ulcer [Unknown]
  - Skin lesion [Unknown]
  - Herpes zoster [Not Recovered/Not Resolved]
  - Fatigue [Unknown]

NARRATIVE: CASE EVENT DATE: 20230117
